FAERS Safety Report 7744412-7 (Version None)
Quarter: 2011Q3

REPORT INFORMATION
  Report Type: 
  Country: None (occurrence: None)
  Receive Date: 20110912
  Receipt Date: 20110907
  Transmission Date: 20111222
  Serious: Yes (Other)
  Sender: FDA-Public Use
  Company Number: DE-BRISTOL-MYERS SQUIBB COMPANY-16040511

PATIENT
  Sex: Male

DRUGS (4)
  1. ABILIFY [Suspect]
     Indication: DEPRESSION
  2. PROMETHAZINE HCL [Suspect]
  3. ABILIFY [Suspect]
     Indication: ANXIETY DISORDER
  4. CITALOPRAM HYDROBROMIDE [Suspect]

REACTIONS (4)
  - VISION BLURRED [None]
  - PSYCHOTIC DISORDER [None]
  - NAUSEA [None]
  - EUPHORIC MOOD [None]
